FAERS Safety Report 16008387 (Version 1)
Quarter: 2019Q1

REPORT INFORMATION
  Report Type: Spontaneous
  Country: US (occurrence: US)
  Receive Date: 20190226
  Receipt Date: 20190226
  Transmission Date: 20190418
  Serious: Yes (Other)
  Sender: FDA-Public Use
  Company Number: US-AKORN PHARMACEUTICALS-2019AKN00091

PATIENT
  Sex: Male
  Weight: 54.42 kg

DRUGS (2)
  1. MYORISAN [Suspect]
     Active Substance: ISOTRETINOIN
     Indication: ACNE CONGLOBATA
     Dosage: 60 MG, 1X/DAY
     Route: 048
     Dates: start: 20181008, end: 20190102
  2. UNSPECIFIED MOISTURIZERS [Concomitant]

REACTIONS (3)
  - Panic attack [Unknown]
  - Affect lability [Unknown]
  - Anxiety [Unknown]
